FAERS Safety Report 21677687 (Version 1)
Quarter: 2022Q4

REPORT INFORMATION
  Report Type: Report from Study
  Country: US (occurrence: US)
  Receive Date: 20221203
  Receipt Date: 20221203
  Transmission Date: 20230113
  Serious: No
  Sender: FDA-Public Use
  Company Number: US-ABBVIE-4221799

PATIENT
  Sex: Female

DRUGS (1)
  1. VENCLEXTA [Suspect]
     Active Substance: VENETOCLAX
     Indication: Acute lymphocytic leukaemia recurrent
     Dosage: TAKE 3 TABLET(S) BY MOUTH EVERY DAY?FORM STRENGTH: 100 MG
     Route: 048

REACTIONS (1)
  - Incorrect dose administered [Unknown]
